FAERS Safety Report 6154180-0 (Version None)
Quarter: 2009Q2

REPORT INFORMATION
  Report Type: 
  Country: None (occurrence: None)
  Receive Date: 20090410
  Receipt Date: 20090331
  Transmission Date: 20091009
  Serious: No
  Sender: FDA-Public Use
  Company Number: 230709

PATIENT
  Age: 60 Year
  Sex: Female
  Weight: 58.0604 kg

DRUGS (5)
  1. MORPHINE SUL TAB [Suspect]
     Dosage: 2 MG, ONCE, INTRAVENOUS
     Route: 042
     Dates: start: 20090330, end: 20090330
  2. CEFAZOLIN [Concomitant]
  3. PROMETHAZINE [Concomitant]
  4. ZOFRAN [Concomitant]
  5. REGLAN [Concomitant]

REACTIONS (2)
  - ERYTHEMA [None]
  - PAIN [None]
